FAERS Safety Report 20804809 (Version 10)
Quarter: 2023Q2

REPORT INFORMATION
  Report Type: Spontaneous
  Country: US (occurrence: US)
  Receive Date: 20220509
  Receipt Date: 20230612
  Transmission Date: 20230721
  Serious: Yes (Other)
  Sender: FDA-Public Use
  Company Number: US-PFIZER INC-202200641760

PATIENT
  Age: 73 Year
  Sex: Female
  Weight: 87.08 kg

DRUGS (1)
  1. IBRANCE [Suspect]
     Active Substance: PALBOCICLIB
     Indication: Breast cancer stage IV
     Dosage: 100 MG, CYCLIC (21 DAYS AND THEN WAIT 7 DAYS)
     Route: 048

REACTIONS (14)
  - Weight increased [Recovered/Resolved]
  - Neoplasm progression [Not Recovered/Not Resolved]
  - Metabolic disorder [Not Recovered/Not Resolved]
  - Dry skin [Not Recovered/Not Resolved]
  - Abdominal discomfort [Not Recovered/Not Resolved]
  - Irritable bowel syndrome [Not Recovered/Not Resolved]
  - White blood cell count decreased [Not Recovered/Not Resolved]
  - Ear disorder [Unknown]
  - Scab [Unknown]
  - Dry eye [Unknown]
  - Nasal dryness [Unknown]
  - Gastrointestinal disorder [Unknown]
  - Alopecia [Unknown]
  - Bowel movement irregularity [Unknown]

NARRATIVE: CASE EVENT DATE: 20220101
